FAERS Safety Report 6612137-7 (Version None)
Quarter: 2010Q1

REPORT INFORMATION
  Report Type: 
  Country: None (occurrence: None)
  Receive Date: 20100219
  Receipt Date: 20090709
  Transmission Date: 20100710
  Serious: Yes (Other)
  Sender: FDA-Public Use
  Company Number: 643376

PATIENT
  Age: 9 Year
  Sex: Female

DRUGS (3)
  1. KLONOPIN [Suspect]
     Indication: CONVULSION
     Dosage: 1 MG 1 PER AS NECESSARY SUBLINGUAL
     Route: 060
  2. KEPPRA [Concomitant]
  3. FELBATOL [Concomitant]

REACTIONS (2)
  - CONVULSION [None]
  - DRUG INEFFECTIVE [None]
